FAERS Safety Report 12238451 (Version 5)
Quarter: 2019Q3

REPORT INFORMATION
  Report Type: Spontaneous
  Country: US (occurrence: US)
  Receive Date: 20160405
  Receipt Date: 20190829
  Transmission Date: 20191004
  Serious: Yes (Hospitalization, Other)
  Sender: FDA-Public Use
  Company Number: US-PFIZER INC-2016187216

PATIENT
  Age: 51 Year
  Sex: Female
  Weight: 52 kg

DRUGS (19)
  1. POTASSIUM CHLORIDE. [Concomitant]
     Active Substance: POTASSIUM CHLORIDE
     Indication: HYPOKALAEMIC SYNDROME
     Dosage: 10 MEQ, 2X/DAY, (TAKE 1 PO BID)
     Route: 048
  2. LORCET [Concomitant]
     Active Substance: ACETAMINOPHEN\HYDROCODONE BITARTRATE
     Indication: PAIN
     Dosage: 10 MG, AS NEEDED [EVERY 12 HOURS AS NEEDED]
  3. LIDOCAINE. [Concomitant]
     Active Substance: LIDOCAINE
     Dosage: 2 %, 4X/DAY [Q6H]
     Route: 048
  4. NYSTATIN. [Concomitant]
     Active Substance: NYSTATIN
     Dosage: UNK UNK, 4X/DAY (60 CC NYSTATIN 100,000 UNITS/CC USE 30CC PO Q6H)
     Route: 048
  5. NORVASC [Concomitant]
     Active Substance: AMLODIPINE BESYLATE
     Dosage: 10 MG, DAILY, (TAKE 1 PO DAILY)
     Route: 048
  6. PRILOSEC [Concomitant]
     Active Substance: OMEPRAZOLE MAGNESIUM
     Dosage: 20 MG, 1X/DAY
     Route: 048
     Dates: start: 20120921
  7. PROMETHAZINE HCL [Concomitant]
     Active Substance: PROMETHAZINE HYDROCHLORIDE
     Indication: NAUSEA
     Dosage: 25 MG, AS NEEDED (Q4H PRN)
     Route: 048
     Dates: start: 20120821
  8. TAMOXIFEN CITRATE. [Concomitant]
     Active Substance: TAMOXIFEN CITRATE
     Dosage: 20 MG, 1X/DAY
     Route: 048
     Dates: start: 20130403
  9. AROMASIN [Suspect]
     Active Substance: EXEMESTANE
     Indication: BREAST CANCER FEMALE
     Dosage: 25 MG, DAILY, (TAKE 1 PO DAILY AS DIRECTED)
     Route: 048
     Dates: start: 2015
  10. AMITRIPTYLINE HCL [Concomitant]
     Active Substance: AMITRIPTYLINE
     Dosage: 50 MG, 1X/DAY, (TAKE 1 PO QHS)
     Route: 048
  11. BENADRYL [Concomitant]
     Active Substance: DIPHENHYDRAMINE HYDROCHLORIDE
     Dosage: UNK, 4X/DAY [Q 6H]
     Route: 048
  12. ICAR-C [Concomitant]
     Dosage: UNK, 100-250 MG (TABLET TAKE 1 PO AS DIRECTED)
     Route: 048
     Dates: start: 20130806
  13. XANAX [Concomitant]
     Active Substance: ALPRAZOLAM
     Dosage: 5 MG, DAILY (1MG, 5 TIMES DAILY)
     Route: 048
  14. ADACEL TDAP [Concomitant]
     Active Substance: TETANUS TOXOID, REDUCED DIPHTHERIA TOXOID AND ACELLULAR PERTUSSIS VACCINE ADSORBED, TDAP
     Dosage: 0.5 ML, UNK, (AS DIRECTED)
     Route: 030
  15. MAALOX ANTACID [Concomitant]
     Active Substance: ALUMINUM HYDROXIDE\DIMETHICONE\MAGNESIUM HYDROXIDE
     Dosage: UNK UNK, 4X/DAY [Q6H]
     Route: 048
  16. ZANTAC [Concomitant]
     Active Substance: RANITIDINE HYDROCHLORIDE
     Indication: GASTROOESOPHAGEAL REFLUX DISEASE
     Dosage: 150 MG, 1X/DAY (OCCASIONALLY TAKE ONE AT BEDTIME AS WELL)
     Route: 048
     Dates: start: 201902
  17. DIPHENHYDRAMINE HCL W/LIDOCAINE/NYSTATIN [Concomitant]
     Active Substance: DIPHENHYDRAMINE\LIDOCAINE\NYSTATIN
     Dosage: 30 ML, UNK (1.6G/237ML SUSPENSION AS DIRECTED)
     Route: 048
     Dates: start: 20120827
  18. ALLEGRA [Concomitant]
     Active Substance: FEXOFENADINE HYDROCHLORIDE
     Indication: HYPERSENSITIVITY
     Dosage: 180 MG, 1X/DAY (ONCE A DAY 24 HOUR)
  19. BC HEADACHE [ACETYLSALICYLIC ACID] [Concomitant]
     Indication: HEADACHE
     Dosage: UNK (TAKE OCCASIONALLY)

REACTIONS (20)
  - Anxiety [Unknown]
  - Cataract [Unknown]
  - Hypoaesthesia [Unknown]
  - Gastrooesophageal reflux disease [Unknown]
  - Back pain [Unknown]
  - Neuralgia [Unknown]
  - Balance disorder [Unknown]
  - Body height decreased [Unknown]
  - Vertigo [Unknown]
  - Cerebrovascular accident [Unknown]
  - Blood potassium abnormal [Recovered/Resolved with Sequelae]
  - Sleep disorder [Unknown]
  - Gait disturbance [Unknown]
  - Paraesthesia [Unknown]
  - Ocular hyperaemia [Unknown]
  - Axillary pain [Unknown]
  - Rash [Unknown]
  - Lymphoedema [Unknown]
  - Visual impairment [Unknown]
  - Ear pain [Unknown]

NARRATIVE: CASE EVENT DATE: 20180801
